FAERS Safety Report 8836282 (Version 1)
Quarter: 2012Q4

REPORT INFORMATION
  Report Type: 
  Country: SE (occurrence: SE)
  Receive Date: 20121011
  Receipt Date: 20121011
  Transmission Date: 20130627
  Serious: Yes (Hospitalization)
  Sender: FDA-Public Use
  Company Number: SE-ABBOTT-12P-150-0992627-00

PATIENT
  Age: 79 Year
  Sex: Male

DRUGS (7)
  1. ERGENYL [Suspect]
     Indication: EPILEPSY
     Dates: end: 201208
  2. LAMOTRIGINE [Suspect]
     Indication: EPILEPSY
     Dates: end: 20120727
  3. MADOPARK QUICK [Concomitant]
     Indication: PRODUCT USED FOR UNKNOWN INDICATION
  4. NITROFURANTOIN [Concomitant]
     Indication: PRODUCT USED FOR UNKNOWN INDICATION
  5. IMPUGAN [Concomitant]
     Indication: PRODUCT USED FOR UNKNOWN INDICATION
  6. LACTULOSE [Concomitant]
     Indication: PRODUCT USED FOR UNKNOWN INDICATION
  7. KEPPRA [Concomitant]
     Indication: PRODUCT USED FOR UNKNOWN INDICATION

REACTIONS (4)
  - Fatigue [Unknown]
  - Encephalopathy [Unknown]
  - Aggression [Unknown]
  - Confusional state [Unknown]
